FAERS Safety Report 25097839 (Version 1)
Quarter: 2025Q1

REPORT INFORMATION
  Report Type: Spontaneous
  Country: CN (occurrence: CN)
  Receive Date: 20250320
  Receipt Date: 20250320
  Transmission Date: 20250409
  Serious: Yes (Hospitalization)
  Sender: CHEPLAPHARM
  Company Number: CN-CHEPLA-2025003586

PATIENT
  Age: 68 Year
  Sex: Female
  Weight: 56 kg

DRUGS (6)
  1. OLANZAPINE [Suspect]
     Active Substance: OLANZAPINE
     Indication: Schizophrenia
     Dosage: 10 MG, EVERY NIGHT, APPROVAL NO. H20160497?DAILY DOSE: 10 MILLIGRAM
     Route: 048
     Dates: start: 20250114, end: 20250313
  2. OLANZAPINE [Suspect]
     Active Substance: OLANZAPINE
     Indication: Psychiatric symptom
     Dosage: 10 MG, EVERY NIGHT, APPROVAL NO. H20160497?DAILY DOSE: 10 MILLIGRAM
     Route: 048
     Dates: start: 20250114, end: 20250313
  3. CLOZAPINE [Suspect]
     Active Substance: CLOZAPINE
     Indication: Schizophrenia
     Dosage: NATIONAL APPROVAL NUMBER H32022963?DAILY DOSE: 50 MILLIGRAM
     Route: 048
     Dates: start: 20250114, end: 20250311
  4. CLOZAPINE [Suspect]
     Active Substance: CLOZAPINE
     Indication: Psychiatric symptom
     Dosage: NATIONAL APPROVAL NUMBER H32022963?DAILY DOSE: 50 MILLIGRAM
     Route: 048
     Dates: start: 20250114, end: 20250311
  5. CLOZAPINE [Suspect]
     Active Substance: CLOZAPINE
     Indication: Schizophrenia
     Dosage: DAILY DOSE: 25 MILLIGRAM
  6. CLOZAPINE [Suspect]
     Active Substance: CLOZAPINE
     Indication: Psychiatric symptom
     Dosage: DAILY DOSE: 25 MILLIGRAM

REACTIONS (3)
  - Parkinsonism [Unknown]
  - Dysphagia [Unknown]
  - Urinary hesitation [Unknown]

NARRATIVE: CASE EVENT DATE: 20250304
